FAERS Safety Report 14843198 (Version 2)
Quarter: 2018Q2

REPORT INFORMATION
  Report Type: Spontaneous
  Country: AU (occurrence: AU)
  Receive Date: 20180503
  Receipt Date: 20180509
  Transmission Date: 20180711
  Serious: Yes (Hospitalization, Other)
  Sender: FDA-Public Use
  Company Number: AU-B.I. PHARMACEUTICALS,INC./RIDGEFIELD-2018-BI-023746

PATIENT
  Age: 89 Year
  Sex: Male

DRUGS (1)
  1. PRADAXA [Suspect]
     Active Substance: DABIGATRAN ETEXILATE MESYLATE
     Indication: PRODUCT USED FOR UNKNOWN INDICATION
     Route: 065

REACTIONS (5)
  - Dizziness [Unknown]
  - Coagulation time prolonged [Unknown]
  - Arterial haemorrhage [Recovered/Resolved]
  - Hypotension [Unknown]
  - Transcatheter aortic valve implantation [Unknown]

NARRATIVE: CASE EVENT DATE: 201804
